FAERS Safety Report 24426668 (Version 1)
Quarter: 2024Q4

REPORT INFORMATION
  Report Type: Spontaneous
  Country: EC (occurrence: EC)
  Receive Date: 20241011
  Receipt Date: 20241011
  Transmission Date: 20250114
  Serious: Yes (Other)
  Sender: ROCHE
  Company Number: EC-ROCHE-10000102753

PATIENT

DRUGS (1)
  1. PHESGO [Suspect]
     Active Substance: HYALURONIDASE-ZZXF\PERTUZUMAB\TRASTUZUMAB
     Indication: Product used for unknown indication
     Dosage: NEOADYUVANT, LOCALLY ADVANCED. FREQUENCY WAS NOT REPORTED
     Route: 065

REACTIONS (2)
  - Disease progression [Unknown]
  - Product administration error [Unknown]
